FAERS Safety Report 13997677 (Version 1)
Quarter: 2017Q3

REPORT INFORMATION
  Report Type: Spontaneous
  Country: DE (occurrence: DE)
  Receive Date: 20170921
  Receipt Date: 20170921
  Transmission Date: 20171128
  Serious: Yes (Disabling, Other)
  Sender: FDA-Public Use
  Company Number: DE-BAYER-2017-174177

PATIENT
  Age: 36 Year
  Sex: Female
  Weight: 63 kg

DRUGS (1)
  1. CIPROBAY 500 MG [Suspect]
     Active Substance: CIPROFLOXACIN
     Indication: RESPIRATORY TRACT INFECTION
     Dosage: 500 MG, UNK
     Route: 048
     Dates: start: 20091105

REACTIONS (7)
  - Renal vein compression [Unknown]
  - Coeliac artery compression syndrome [Unknown]
  - Chronic fatigue syndrome [Unknown]
  - Multiple allergies [Unknown]
  - Superior mesenteric artery syndrome [Unknown]
  - Abdominal pain [Unknown]
  - Impaired work ability [Unknown]

NARRATIVE: CASE EVENT DATE: 2009
